FAERS Safety Report 7827424 (Version 5)
Quarter: 2014Q1

REPORT INFORMATION
  Report Type: Report from Study
  Country: IE (occurrence: IE)
  Receive Date: 20110225
  Receipt Date: 20140306
  Transmission Date: 20141002
  Serious: Yes (Hospitalization)
  Sender: FDA-Public Use
  Company Number: PHHO2010IE18890

PATIENT
  Age: 61 Year
  Sex: Female
  Weight: 94.9 kg

DRUGS (15)
  1. AFINITOR [Suspect]
     Indication: BREAST CANCER METASTATIC
     Dosage: 10 MG DAILY
     Route: 048
     Dates: start: 20101130, end: 20101211
  2. AFINITOR [Suspect]
     Dosage: 5 MG, DAILY
     Route: 048
     Dates: start: 20101221, end: 20110105
  3. AFINITOR [Suspect]
     Dosage: 5 MG, DAILY
     Route: 048
     Dates: start: 20110127
  4. COMPARATOR PACLITAXEL [Suspect]
     Indication: BREAST CANCER METASTATIC
     Dosage: 80 MG/M2 DAY 1,8,5 OF 28 DAY CYCLE
     Route: 042
     Dates: end: 20101214
  5. COMPARATOR PACLITAXEL [Suspect]
     Dosage: NO TREATMENT RECEIVED
     Dates: start: 20101215, end: 20101219
  6. COMPARATOR PACLITAXEL [Suspect]
     Dosage: 60 MG/M2, UNK
     Route: 042
     Dates: start: 20101230
  7. COMPARATOR TRASTUZUMAB [Suspect]
     Indication: BREAST CANCER METASTATIC
     Dosage: 380 MG, UNK
     Route: 065
     Dates: start: 20101130
  8. COMPARATOR TRASTUZUMAB [Suspect]
     Dosage: 190 MG, UNK
     Route: 065
     Dates: end: 20101207
  9. COMPARATOR TRASTUZUMAB [Suspect]
     Dosage: NO TREATMENT RECEIVED
     Dates: start: 20101215, end: 20101220
  10. COMPARATOR TRASTUZUMAB [Suspect]
     Dosage: UNK
     Dates: start: 20101221
  11. ATECOR [Concomitant]
  12. AMITRIPTYLINE [Concomitant]
  13. CRESTOR [Concomitant]
  14. NAPROXEN [Concomitant]
  15. FLUCONAZOLE [Concomitant]
     Indication: VULVOVAGINAL CANDIDIASIS
     Dosage: UNK
     Dates: start: 20101216, end: 20101220

REACTIONS (2)
  - Catheter site infection [Recovered/Resolved]
  - Febrile neutropenia [Recovered/Resolved]
